FAERS Safety Report 7793598-7 (Version None)
Quarter: 2011Q4

REPORT INFORMATION
  Report Type: 
  Country: None (occurrence: None)
  Receive Date: 20111003
  Receipt Date: 20110516
  Transmission Date: 20120403
  Serious: No
  Sender: FDA-Public Use
  Company Number: US-BAYER-2011-041812

PATIENT
  Age: 50 Year
  Sex: Male

DRUGS (3)
  1. LEVITRA [Suspect]
     Indication: ERECTILE DYSFUNCTION
     Dosage: 20 MG, QD
     Route: 048
     Dates: start: 20110509
  2. LOSARTAN POTASSIUM [Concomitant]
     Dosage: 25 MG, UNK
  3. TENATOPRAZOLE [Concomitant]

REACTIONS (1)
  - ERECTILE DYSFUNCTION [None]
